FAERS Safety Report 7771149-0 (Version None)
Quarter: 2011Q3

REPORT INFORMATION
  Report Type: 
  Country: None (occurrence: None)
  Receive Date: 20110922
  Receipt Date: 20100827
  Transmission Date: 20111222
  Serious: No
  Sender: FDA-Public Use
  Company Number: US-ASTRAZENECA-2007UW27713

PATIENT
  Age: 51 Year
  Sex: Female
  Weight: 63.5 kg

DRUGS (11)
  1. SEROQUEL [Suspect]
     Route: 048
     Dates: start: 20010101, end: 20070101
  2. SEROQUEL [Suspect]
     Indication: DEPRESSION
     Route: 048
     Dates: start: 20060602, end: 20070429
  3. SEROQUEL [Suspect]
     Indication: ANXIETY
     Route: 048
     Dates: start: 20060602, end: 20070429
  4. SEROQUEL [Suspect]
     Indication: BIPOLAR DISORDER
     Route: 048
     Dates: start: 20060602, end: 20070429
  5. SEROQUEL [Suspect]
     Dosage: 25-50 MG
     Route: 048
     Dates: start: 20060825, end: 20070928
  6. SEROQUEL [Suspect]
     Route: 048
     Dates: start: 20010101, end: 20070101
  7. HALDOL [Concomitant]
     Dates: start: 19900101
  8. ABILIFY [Concomitant]
     Dates: start: 20060101
  9. SEROQUEL [Suspect]
     Dosage: 25-50 MG
     Route: 048
     Dates: start: 20060825, end: 20070928
  10. SEROQUEL [Suspect]
     Dosage: 25-50 MG
     Route: 048
     Dates: start: 20060825, end: 20070928
  11. SEROQUEL [Suspect]
     Route: 048
     Dates: start: 20010101, end: 20070101

REACTIONS (6)
  - DIABETIC COMPLICATION [None]
  - MENTAL DISORDER [None]
  - BLOOD TRIGLYCERIDES INCREASED [None]
  - INSOMNIA [None]
  - ANGIOPATHY [None]
  - TYPE 2 DIABETES MELLITUS [None]
